FAERS Safety Report 11050839 (Version 1)
Quarter: 2015Q2

REPORT INFORMATION
  Report Type: Spontaneous
  Country: US (occurrence: None)
  Receive Date: 20150420
  Receipt Date: 20150420
  Transmission Date: 20150821
  Serious: No
  Sender: FDA-Public Use
  Company Number: None

PATIENT
  Sex: Female

DRUGS (1)
  1. DABIGATRAN [Suspect]
     Active Substance: DABIGATRAN

REACTIONS (17)
  - Confusional state [None]
  - Dyspnoea [None]
  - Medication error [None]
  - Circumstance or information capable of leading to medication error [None]
  - Haematemesis [None]
  - Asthenia [None]
  - Urinary tract infection [None]
  - International normalised ratio increased [None]
  - Respiratory arrest [None]
  - Hypotension [None]
  - Activated partial thromboplastin time prolonged [None]
  - Anticoagulation drug level above therapeutic [None]
  - Bacterial test positive [None]
  - Acute kidney injury [None]
  - Cardiac arrest [None]
  - Nausea [None]
  - Mouth haemorrhage [None]
